FAERS Safety Report 21185129 (Version 1)
Quarter: 2022Q3

REPORT INFORMATION
  Report Type: Spontaneous
  Country: US (occurrence: US)
  Receive Date: 20220808
  Receipt Date: 20220808
  Transmission Date: 20221027
  Serious: Yes (Other)
  Sender: FDA-Public Use
  Company Number: US-PFIZER INC-202201038094

PATIENT
  Age: 55 Year
  Sex: Female
  Weight: 117.93 kg

DRUGS (1)
  1. DEPO-ESTRADIOL [Suspect]
     Active Substance: ESTRADIOL CYPIONATE
     Dosage: 1 ML (EVERY 4 WEEKS)

REACTIONS (1)
  - Drug dependence [Unknown]
